FAERS Safety Report 24749760 (Version 1)
Quarter: 2024Q4

REPORT INFORMATION
  Report Type: Spontaneous
  Country: CN (occurrence: CN)
  Receive Date: 20241218
  Receipt Date: 20241218
  Transmission Date: 20250115
  Serious: Yes (Hospitalization)
  Sender: ELI LILLY AND COMPANY
  Company Number: CN-ELI_LILLY_AND_COMPANY-CN202412007366

PATIENT
  Age: 48 Year
  Sex: Male
  Weight: 73 kg

DRUGS (2)
  1. GEMZAR [Suspect]
     Active Substance: GEMCITABINE HYDROCHLORIDE
     Indication: Lung neoplasm malignant
     Dosage: 1400 MG, OTHER (AT ONCE A DAY)
     Route: 041
     Dates: start: 20241127, end: 20241127
  2. SINTILIMAB [Concomitant]
     Active Substance: SINTILIMAB
     Indication: Prophylaxis
     Dosage: 20 ML, OTHER (AT ONCE A DAY)
     Route: 041
     Dates: start: 20241120, end: 20241120

REACTIONS (5)
  - Heart rate increased [Not Recovered/Not Resolved]
  - White blood cell count increased [Not Recovered/Not Resolved]
  - Blood creatinine increased [Not Recovered/Not Resolved]
  - Haemoglobin decreased [Not Recovered/Not Resolved]
  - Platelet count decreased [Not Recovered/Not Resolved]

NARRATIVE: CASE EVENT DATE: 20241204
